FAERS Safety Report 4779496-1 (Version None)
Quarter: 2005Q3

REPORT INFORMATION
  Report Type: 
  Country: None (occurrence: None)
  Receive Date: 20050922
  Receipt Date: 20050125
  Transmission Date: 20060218
  Serious: Yes (Other)
  Sender: FDA-Public Use
  Company Number: 2005014934

PATIENT
  Sex: Female
  Weight: 50.8029 kg

DRUGS (4)
  1. ZYRTEC [Suspect]
     Indication: SINUS DISORDER
     Dosage: 10 MG (10 MG, 1 D),
  2. ALENDRONATE SODIUM [Concomitant]
  3. ATORVASTATIN CALCIUM [Concomitant]
  4. ALL OTHER THERAPEUTIC PRODUCTS (ALL OTHER THERAPEUTIC PRODUCTS) [Concomitant]

REACTIONS (5)
  - AGEUSIA [None]
  - DRUG INEFFECTIVE [None]
  - HIATUS HERNIA [None]
  - POSTNASAL DRIP [None]
  - SINUS DISORDER [None]
